FAERS Safety Report 5848940-0 (Version None)
Quarter: 2008Q3

REPORT INFORMATION
  Report Type: 
  Country: None (occurrence: None)
  Receive Date: 20080819
  Receipt Date: 20080811
  Transmission Date: 20090109
  Serious: Yes (Other)
  Sender: FDA-Public Use
  Company Number: PHEH2008US05967

PATIENT
  Sex: Male

DRUGS (1)
  1. TEKTURNA [Suspect]
     Indication: HYPERTENSION
     Dosage: 150 MG, QD
     Route: 048
     Dates: start: 20070801, end: 20080501

REACTIONS (2)
  - POROKERATOSIS [None]
  - RASH PRURITIC [None]
